FAERS Safety Report 7961337-2 (Version None)
Quarter: 2011Q4

REPORT INFORMATION
  Report Type: 
  Country: None (occurrence: None)
  Receive Date: 20111202
  Receipt Date: 20111202
  Transmission Date: 20120403
  Serious: No
  Sender: FDA-Public Use
  Company Number: None

PATIENT
  Age: 55 Year
  Sex: Female

DRUGS (2)
  1. VICTRELIS [Suspect]
     Indication: HEPATITIS C
     Dosage: VICTRELIS 600MG Q8H Q8H
     Dates: start: 20110919, end: 20111129
  2. PEGASYS 180MCG AND RIBAPAK 1000 [Suspect]
     Indication: HEPATITIS C
     Dosage: PEGASYS /  RIBAP QW/DAILY SQ/PO
     Route: 058
     Dates: start: 20110902, end: 20111129

REACTIONS (4)
  - DIARRHOEA [None]
  - FATIGUE [None]
  - DRY SKIN [None]
  - COUGH [None]
